FAERS Safety Report 13274045 (Version 1)
Quarter: 2017Q1

REPORT INFORMATION
  Report Type: Spontaneous
  Country: FR (occurrence: FR)
  Receive Date: 20170227
  Receipt Date: 20170227
  Transmission Date: 20170428
  Serious: Yes (Hospitalization)
  Sender: FDA-Public Use
  Company Number: FR-SA-2014SA121473

PATIENT
  Age: 90 Year
  Sex: Female

DRUGS (8)
  1. LASILIX [Suspect]
     Active Substance: FUROSEMIDE
     Route: 048
     Dates: start: 20140319, end: 20140630
  2. CORDARONE [Suspect]
     Active Substance: AMIODARONE HYDROCHLORIDE
     Indication: ATRIAL FIBRILLATION
     Route: 048
     Dates: start: 20140319, end: 20140630
  3. LEVOTHYROX [Concomitant]
     Active Substance: LEVOTHYROXINE
     Indication: HYPOTHYROIDISM
     Route: 048
  4. KARDEGIC [Concomitant]
     Active Substance: ASPIRIN LYSINE
     Route: 048
  5. LYRICA [Concomitant]
     Active Substance: PREGABALIN
  6. PREVISCAN [Suspect]
     Active Substance: FLUINDIONE
     Route: 048
     Dates: start: 20140319, end: 20140630
  7. CO-APROVEL [Suspect]
     Active Substance: HYDROCHLOROTHIAZIDE\IRBESARTAN
     Route: 048
     Dates: start: 201407, end: 20140827
  8. BISOPROLOL [Suspect]
     Active Substance: BISOPROLOL
     Route: 048
     Dates: start: 20140319, end: 20140630

REACTIONS (2)
  - Cholestasis [Recovered/Resolved with Sequelae]
  - Jaundice [Recovered/Resolved with Sequelae]

NARRATIVE: CASE EVENT DATE: 201408
